FAERS Safety Report 23022155 (Version 2)
Quarter: 2023Q4

REPORT INFORMATION
  Report Type: Spontaneous
  Country: US (occurrence: US)
  Receive Date: 20231003
  Receipt Date: 20231011
  Transmission Date: 20240110
  Serious: No
  Sender: FDA-Public Use
  Company Number: US-Calliditas-2023CAL01278

PATIENT
  Age: 31 Year
  Sex: Female

DRUGS (6)
  1. TARPEYO [Suspect]
     Active Substance: BUDESONIDE
     Indication: IgA nephropathy
     Dosage: 16MG (4MG CAPSULES) ONCE DAILY
     Route: 048
     Dates: start: 20230911
  2. VITAMINS [Concomitant]
     Active Substance: VITAMINS
  3. METHOCARBAMOL [Concomitant]
     Active Substance: METHOCARBAMOL
  4. ZYRTEC [Concomitant]
     Active Substance: CETIRIZINE HYDROCHLORIDE
  5. SIMVASTATIN [Concomitant]
     Active Substance: SIMVASTATIN
  6. LOSARTAN [Concomitant]
     Active Substance: LOSARTAN

REACTIONS (1)
  - Product dose omission issue [Recovered/Resolved]
